FAERS Safety Report 8921089 (Version 1)
Quarter: 2012Q4

REPORT INFORMATION
  Report Type: 
  Country: US (occurrence: US)
  Receive Date: 20121121
  Receipt Date: 20121121
  Transmission Date: 20130627
  Serious: Yes (Other)
  Sender: FDA-Public Use
  Company Number: US-TEVA-371235USA

PATIENT
  Age: 70 Year
  Sex: Male

DRUGS (2)
  1. AMIODARONE [Suspect]
     Indication: VENTRICULAR TACHYCARDIA
     Dosage: per advanced cardiac life support protocol
     Route: 042
  2. AMIODARONE [Suspect]
     Indication: VENTRICULAR TACHYCARDIA
     Dosage: continued for recurrent arrhythmias
     Route: 041

REACTIONS (1)
  - Venous thrombosis limb [Unknown]
